FAERS Safety Report 9291441 (Version 1)
Quarter: 2013Q2

REPORT INFORMATION
  Report Type: Spontaneous
  Country: US (occurrence: US)
  Receive Date: 20130515
  Receipt Date: 20130515
  Transmission Date: 20140414
  Serious: Yes (Other)
  Sender: FDA-Public Use
  Company Number: US-SHIRE-ALL1-2013-03045

PATIENT
  Age: 16 Year
  Sex: Male

DRUGS (4)
  1. VYVANSE [Suspect]
     Indication: PRODUCT USED FOR UNKNOWN INDICATION
     Dosage: 60 MG, UNKNOWN
     Route: 048
  2. VYVANSE [Suspect]
     Dosage: 70 MG, UNKNOWN
     Route: 048
  3. INTUNIV [Suspect]
     Indication: PRODUCT USED FOR UNKNOWN INDICATION
     Dosage: 2 MG, UNKNOWN
     Route: 048
  4. INTUNIV [Suspect]
     Dosage: 1 MG, UNKNOWN
     Route: 048

REACTIONS (1)
  - Syncope [Unknown]
